FAERS Safety Report 9893347 (Version 2)
Quarter: 2014Q1

REPORT INFORMATION
  Report Type: Spontaneous
  Country: JP (occurrence: JP)
  Receive Date: 20140213
  Receipt Date: 20140326
  Transmission Date: 20141002
  Serious: Yes (Hospitalization, Other)
  Sender: FDA-Public Use
  Company Number: JP-JNJFOC-20140205526

PATIENT
  Age: 60 Year
  Sex: Male
  Weight: 56 kg

DRUGS (8)
  1. REMICADE [Suspect]
     Indication: COLITIS ULCERATIVE
     Route: 042
     Dates: start: 20121127
  2. REMICADE [Suspect]
     Indication: COLITIS ULCERATIVE
     Dosage: 15 TH DOSE
     Route: 042
     Dates: start: 20131218
  3. REMICADE [Suspect]
     Indication: COLITIS ULCERATIVE
     Route: 042
     Dates: start: 20120316
  4. REMICADE [Suspect]
     Indication: COLITIS ULCERATIVE
     Route: 042
     Dates: start: 201302
  5. IMURAN [Suspect]
     Indication: COLITIS ULCERATIVE
     Route: 048
     Dates: start: 20110601
  6. PENTASA [Concomitant]
     Indication: COLITIS ULCERATIVE
     Route: 048
     Dates: start: 20110530
  7. EBASTEL [Concomitant]
     Indication: PROPHYLAXIS
     Route: 048
  8. TRAMACET [Concomitant]
     Indication: ARTHRALGIA
     Route: 048
     Dates: start: 20131028

REACTIONS (2)
  - Lupus-like syndrome [Unknown]
  - Tuberculous pleurisy [Not Recovered/Not Resolved]
